FAERS Safety Report 9252765 (Version 1)
Quarter: 2013Q2

REPORT INFORMATION
  Report Type: Spontaneous
  Country: FR (occurrence: FR)
  Receive Date: 20130424
  Receipt Date: 20130424
  Transmission Date: 20140414
  Serious: Yes (Other)
  Sender: FDA-Public Use
  Company Number: FR-ASTRAZENECA-2013SE25201

PATIENT
  Age: 29561 Day
  Sex: Female

DRUGS (7)
  1. CRESTOR [Suspect]
     Dosage: 10 MG EVERY DAY, LONG LASTING TREATMENT
     Route: 048
     Dates: end: 20120425
  2. ALLOPURINOL [Suspect]
     Dosage: 200 MG EVERY DAY, LONG LASTING TREATMENT
     Route: 048
     Dates: end: 20120425
  3. TIORFAN [Suspect]
     Indication: DIARRHOEA
     Dosage: 100 MG, THREE TIMES A DAY ,LONG LASTING TREATMENT
     Route: 048
     Dates: end: 20120425
  4. PLAVIX [Concomitant]
     Dosage: 75 MG, EVERY DAY , LONG LASTING TREATMENT
     Route: 048
  5. STILNOX [Concomitant]
     Dosage: 10 MG, EVERY DAY, LONG LASTING TREATMENT
     Route: 048
  6. DOLIPRANE [Concomitant]
  7. FLECTOR [Concomitant]

REACTIONS (3)
  - Diarrhoea [Recovered/Resolved]
  - Abdominal pain [Recovered/Resolved]
  - Weight decreased [Unknown]
